FAERS Safety Report 8726278 (Version 2)
Quarter: 2013Q1

REPORT INFORMATION
  Report Type: Spontaneous
  Country: BR (occurrence: BR)
  Receive Date: 20120816
  Receipt Date: 20130325
  Transmission Date: 20140127
  Serious: Yes (Other)
  Sender: FDA-Public Use
  Company Number: PHHY2012BR025577

PATIENT
  Sex: Male

DRUGS (4)
  1. SANDOSTATIN LAR [Suspect]
     Indication: PITUITARY TUMOUR
     Dosage: 20 MG, PER MONTH
     Route: 030
  2. SANDOSTATIN LAR [Suspect]
     Dosage: 30 MG, PER MONTH
     Route: 030
  3. SANDOSTATIN LAR [Suspect]
     Dosage: 40 MG, PER MONTH
     Route: 030
  4. CABERGOLINE [Concomitant]
     Indication: NEOPLASM
     Dosage: 1 DF, 3 TIMES PER WEEK
     Route: 048

REACTIONS (2)
  - Hearing impaired [Not Recovered/Not Resolved]
  - Asthenia [Not Recovered/Not Resolved]
